FAERS Safety Report 25178586 (Version 3)
Quarter: 2025Q3

REPORT INFORMATION
  Report Type: Report from Study
  Country: US (occurrence: US)
  Receive Date: 20250409
  Receipt Date: 20250725
  Transmission Date: 20251020
  Serious: Yes (Other)
  Sender: ACADIA PHARMACEUTICALS
  Company Number: US-ACADIA PHARMACEUTICALS INC.-ACA-2025-PIM-004075

PATIENT
  Age: 72 Year
  Sex: Male

DRUGS (4)
  1. NUPLAZID [Suspect]
     Active Substance: PIMAVANSERIN TARTRATE
     Indication: Dementia with Lewy bodies
     Dosage: 34 MILLIGRAM, QD
     Route: 048
     Dates: start: 202409
  2. NUPLAZID [Suspect]
     Active Substance: PIMAVANSERIN TARTRATE
     Indication: Cognitive disorder
  3. DONEPEZIL [Concomitant]
     Active Substance: DONEPEZIL
     Dosage: UNK, BID
  4. MEMANTINE [Concomitant]
     Active Substance: MEMANTINE
     Dosage: UNK, QD

REACTIONS (3)
  - Hallucination [Unknown]
  - General symptom [Unknown]
  - Product use in unapproved indication [Unknown]

NARRATIVE: CASE EVENT DATE: 20240904
